FAERS Safety Report 6369317-8 (Version None)
Quarter: 2009Q3

REPORT INFORMATION
  Report Type: 
  Country: None (occurrence: None)
  Receive Date: 20090916
  Receipt Date: 20090901
  Transmission Date: 20100115
  Serious: Yes (Death, Life-Threatening, Hospitalization)
  Sender: FDA-Public Use
  Company Number: 2009002186

PATIENT
  Age: 63 Year
  Sex: Male
  Weight: 48.7 kg

DRUGS (18)
  1. ERLOTINIB HYDROCHLORIDE [Suspect]
     Indication: NON-SMALL CELL LUNG CANCER
     Dosage: (150 MG,QD),ORAL
     Route: 048
     Dates: start: 20090604, end: 20090616
  2. OXYCONTIN [Concomitant]
  3. OXYCODONE HCL [Concomitant]
  4. ULTRACET [Concomitant]
  5. FENTANYL-100 [Concomitant]
  6. TRIMEBUTINE MALEATE (TRIMEBUTINE MALEATE) [Concomitant]
  7. MEGESTROL ACETATE [Concomitant]
  8. LOPERAMIDE OXIDE (LOPERAMIDE OXIDE) [Concomitant]
  9. DULCALAX [Concomitant]
  10. DOCUSATE SODIUM (DOCUSATE SODIUM) [Concomitant]
  11. LACTULOSE [Concomitant]
  12. MAGNESIUM OXIDE (MAGNESIUM OXIDE) [Concomitant]
  13. VITACAL [Concomitant]
  14. ALENDRONATE SODIUM [Concomitant]
  15. MORPHINE [Concomitant]
  16. ONDANSETRON [Concomitant]
  17. POVIDONE IODINE [Concomitant]
  18. BENZYDAMINE HYDROCHLORIDE (BENZYDAMINE HYDROCHLORIDE) [Concomitant]

REACTIONS (4)
  - METASTASES TO LUNG [None]
  - PNEUMONIA [None]
  - RESPIRATORY FAILURE [None]
  - SQUAMOUS CELL CARCINOMA [None]
